FAERS Safety Report 10052143 (Version 1)
Quarter: 2014Q2

REPORT INFORMATION
  Report Type: Report from Study
  Country: DE (occurrence: DE)
  Receive Date: 20140402
  Receipt Date: 20140402
  Transmission Date: 20141212
  Serious: Yes (Hospitalization)
  Sender: FDA-Public Use
  Company Number: DE-ABBVIE-14P-062-1216571-00

PATIENT
  Age: 50 Year
  Sex: Male

DRUGS (3)
  1. KALETRA [Suspect]
     Indication: HIV INFECTION
     Dates: start: 20011120
  2. COMBIVIR [Concomitant]
     Indication: HIV INFECTION
  3. VIDEX [Concomitant]
     Indication: HIV INFECTION

REACTIONS (1)
  - Angina pectoris [Unknown]
